FAERS Safety Report 8615806-2 (Version None)
Quarter: 2012Q3

REPORT INFORMATION
  Report Type: 
  Country: None (occurrence: None)
  Receive Date: 20120823
  Receipt Date: 20120816
  Transmission Date: 20120928
  Serious: Yes (Other)
  Sender: FDA-Public Use
  Company Number: CA-ROCHE-1064772

PATIENT
  Sex: Female

DRUGS (5)
  1. ALVESCO [Concomitant]
     Dosage: 8 PUFF PER DAY
     Dates: start: 20120809
  2. SINGULAIR [Concomitant]
  3. ALBUTEROL SULATE [Concomitant]
  4. FLUTICASONE PROPIONATE [Concomitant]
  5. XOLAIR [Suspect]
     Indication: ASTHMA
     Route: 058
     Dates: start: 20120327

REACTIONS (2)
  - COUGH [None]
  - BLOOD PRESSURE INCREASED [None]
